FAERS Safety Report 12454748 (Version 1)
Quarter: 2016Q2

REPORT INFORMATION
  Report Type: Spontaneous
  Country: ES (occurrence: ES)
  Receive Date: 20160610
  Receipt Date: 20160610
  Transmission Date: 20160815
  Serious: Yes (Death, Other)
  Sender: FDA-Public Use
  Company Number: ES-STRIDES ARCOLAB LIMITED-2016SP005280

PATIENT

DRUGS (3)
  1. LORAZEPAM. [Suspect]
     Active Substance: LORAZEPAM
     Dosage: 50 MG, UNK
     Route: 048
  2. IBUPROFEN. [Suspect]
     Active Substance: IBUPROFEN
     Dosage: UNK
     Route: 048
  3. GLIBENCLAMIDE [Suspect]
     Active Substance: GLYBURIDE
     Dosage: 150 MG, UNK
     Route: 048

REACTIONS (7)
  - Completed suicide [Fatal]
  - Hypoglycaemia [Fatal]
  - Brain injury [Fatal]
  - Brain death [Fatal]
  - Brain oedema [Fatal]
  - Toxicity to various agents [Fatal]
  - Coma [Unknown]
